FAERS Safety Report 6847331-3 (Version None)
Quarter: 2010Q3

REPORT INFORMATION
  Report Type: 
  Country: None (occurrence: None)
  Receive Date: 20100716
  Receipt Date: 20100708
  Transmission Date: 20110219
  Serious: Yes (Other)
  Sender: FDA-Public Use
  Company Number: CA-NAPPMUNDI-CAN-2010-0001442

PATIENT

DRUGS (2)
  1. BUTRANS TRANSDERMAL PATCH [Suspect]
     Indication: MUSCULOSKELETAL PAIN
     Dosage: UNK
     Route: 062
     Dates: start: 20100101, end: 20100101
  2. BUTRANS TRANSDERMAL PATCH [Suspect]
     Indication: BACK PAIN

REACTIONS (7)
  - ASTHENIA [None]
  - DYSPHAGIA [None]
  - HEADACHE [None]
  - HEPATIC PAIN [None]
  - INSOMNIA [None]
  - NAUSEA [None]
  - TREMOR [None]
